FAERS Safety Report 7462178-5 (Version None)
Quarter: 2011Q2

REPORT INFORMATION
  Report Type: 
  Country: None (occurrence: None)
  Receive Date: 20110506
  Receipt Date: 20090930
  Transmission Date: 20111010
  Serious: Yes (Hospitalization, Other)
  Sender: FDA-Public Use
  Company Number: US-BAYER-200934800NA

PATIENT
  Age: 63 Year
  Sex: Male
  Weight: 86.168 kg

DRUGS (5)
  1. INS [INSULIN] [Concomitant]
     Dosage: 1 UNIT / HOUR
     Route: 042
     Dates: start: 20060207, end: 20060207
  2. TRASYLOL [Suspect]
     Indication: CORONARY ARTERY ANEURYSM
  3. LOPRESSOR [Concomitant]
  4. VERSED [Concomitant]
     Dosage: 7 MG, UNK
     Route: 042
     Dates: start: 20060207, end: 20060207
  5. TRASYLOL [Suspect]
     Indication: CORONARY ARTERY BYPASS
     Dosage: 200 ML PRIME CARDIOPULMONARY BYPASS
     Dates: start: 20060207, end: 20060207

REACTIONS (10)
  - MULTI-ORGAN FAILURE [None]
  - EMOTIONAL DISTRESS [None]
  - FEAR [None]
  - INJURY [None]
  - PAIN [None]
  - RENAL INJURY [None]
  - DEPRESSION [None]
  - NERVOUSNESS [None]
  - RENAL FAILURE [None]
  - ANXIETY [None]
